FAERS Safety Report 17811579 (Version 1)
Quarter: 2020Q2

REPORT INFORMATION
  Report Type: Spontaneous
  Country: US (occurrence: US)
  Receive Date: 20200520
  Receipt Date: 20200520
  Transmission Date: 20200714
  Serious: Yes (Other)
  Sender: FDA-Public Use
  Company Number: None

PATIENT
  Age: 52 Year
  Sex: Female
  Weight: 91 kg

DRUGS (2)
  1. BRAUN EASYPUMP ELASTOMERIC INFUSION PUMP [Suspect]
     Active Substance: DEVICE
  2. FLUOROURACIL. [Suspect]
     Active Substance: FLUOROURACIL

REACTIONS (3)
  - Nausea [None]
  - Complication associated with device [None]
  - Device connection issue [None]

NARRATIVE: CASE EVENT DATE: 20200519
